FAERS Safety Report 5016890-8 (Version None)
Quarter: 2006Q2

REPORT INFORMATION
  Report Type: 
  Country: None (occurrence: None)
  Receive Date: 20060526
  Receipt Date: 20060512
  Transmission Date: 20061013
  Serious: Yes (Other)
  Sender: FDA-Public Use
  Company Number: US200601005440

PATIENT
  Age: 24 Year
  Sex: Female
  Weight: 63.5 kg

DRUGS (4)
  1. ZYPREXA [Suspect]
     Indication: DEPRESSION
     Dosage: 10 MG, 2/D,
     Dates: start: 20040101, end: 20060201
  2. XANAX /USA/ (ALPRAZOLAM) [Concomitant]
  3. VALIUM /NET/ (DIAZEPAM) [Concomitant]
  4. TRAZODONE HCL [Concomitant]

REACTIONS (12)
  - BLOOD PRESSURE INCREASED [None]
  - CONFUSIONAL STATE [None]
  - CONVULSION [None]
  - DELUSIONAL PERCEPTION [None]
  - DIZZINESS POSTURAL [None]
  - EYE ROLLING [None]
  - FALL [None]
  - LOSS OF CONSCIOUSNESS [None]
  - PHARMACEUTICAL PRODUCT COMPLAINT [None]
  - SOMNOLENCE [None]
  - VISUAL DISTURBANCE [None]
  - WEIGHT INCREASED [None]
